FAERS Safety Report 9262486 (Version 1)
Quarter: 2013Q2

REPORT INFORMATION
  Report Type: Spontaneous
  Country: US (occurrence: None)
  Receive Date: 20130426
  Receipt Date: 20130426
  Transmission Date: 20140414
  Serious: No
  Sender: FDA-Public Use
  Company Number: None

PATIENT
  Age: 40 Year
  Sex: Female

DRUGS (1)
  1. PARAGARD T380A [Suspect]
     Indication: CONTRACEPTION
     Dates: start: 20061012, end: 20130405

REACTIONS (2)
  - Device breakage [None]
  - Device dislocation [None]
